FAERS Safety Report 20398763 (Version 2)
Quarter: 2022Q1

REPORT INFORMATION
  Report Type: Spontaneous
  Country: US (occurrence: US)
  Receive Date: 20220131
  Receipt Date: 20220201
  Transmission Date: 20220424
  Serious: Yes (Hospitalization, Other)
  Sender: FDA-Public Use
  Company Number: US-ABBVIE-21K-163-3804136-00

PATIENT
  Age: 20 Year
  Sex: Female

DRUGS (1)
  1. HUMIRA [Suspect]
     Active Substance: ADALIMUMAB
     Indication: Psoriatic arthropathy
     Route: 058
     Dates: start: 2017

REACTIONS (8)
  - Syncope [Recovered/Resolved]
  - Spinal fracture [Recovering/Resolving]
  - Fall [Recovered/Resolved]
  - Back injury [Recovering/Resolving]
  - Back pain [Recovering/Resolving]
  - Road traffic accident [Recovered/Resolved]
  - Osteoporosis [Recovering/Resolving]
  - Depression [Recovering/Resolving]

NARRATIVE: CASE EVENT DATE: 20200601
